FAERS Safety Report 5230291-9 (Version None)
Quarter: 2007Q1

REPORT INFORMATION
  Report Type: 
  Country: None (occurrence: None)
  Receive Date: 20070206
  Receipt Date: 20061129
  Transmission Date: 20070707
  Serious: No
  Sender: FDA-Public Use
  Company Number: US-GLAXOSMITHKLINE-A0629455A

PATIENT
  Age: 72 Year
  Sex: Female

DRUGS (7)
  1. PAXIL CR [Suspect]
     Indication: DEPRESSION
     Dosage: 25MG PER DAY
     Route: 048
     Dates: start: 20060501
  2. SINGULAIR [Concomitant]
  3. ADVAIR DISKUS 100/50 [Concomitant]
  4. ALBUTEROL [Concomitant]
  5. DIOVAN [Concomitant]
  6. OXYGEN [Concomitant]
  7. MILK OF MAGNESIA [Concomitant]

REACTIONS (6)
  - ABDOMINAL PAIN [None]
  - ABNORMAL DREAMS [None]
  - DEPRESSED MOOD [None]
  - DRY MOUTH [None]
  - NIGHT SWEATS [None]
  - WEIGHT DECREASED [None]
